FAERS Safety Report 12954868 (Version 1)
Quarter: 2016Q4

REPORT INFORMATION
  Report Type: Report from Study
  Country: NL (occurrence: NL)
  Receive Date: 20161118
  Receipt Date: 20161118
  Transmission Date: 20170207
  Serious: Yes (Hospitalization)
  Sender: FDA-Public Use
  Company Number: NL-ROCHE-1855474

PATIENT
  Age: 66 Year
  Sex: Male

DRUGS (3)
  1. CARBOPLATIN. [Suspect]
     Active Substance: CARBOPLATIN
     Indication: NON-SMALL CELL LUNG CANCER
     Dosage: AUC 6?MOST RECENT DOSE PRIOR TO FISRT EPISODE 25/JUL/2016?MOST RECENT DOSE PRIOR TO SECOND EPISODE 1
     Route: 042
     Dates: start: 20160613
  2. BEVACIZUMAB [Suspect]
     Active Substance: BEVACIZUMAB
     Indication: NON-SMALL CELL LUNG CANCER
     Dosage: MOST RECENT DOSE PRIOR TO FISRT EPISODE 25/JUL/2016?MOST RECENT DOSE PRIOR TO SECOND EPISODE 12/SEP/
     Route: 042
     Dates: start: 20160613
  3. PACLITAXEL. [Suspect]
     Active Substance: PACLITAXEL
     Indication: NON-SMALL CELL LUNG CANCER
     Dosage: MOST RECENT DOSE PRIOR TO FISRT EPISODE 25/JUL/2016?MOST RECENT DOSE PRIOR TO SECOND EPISODE 12/SEP/
     Route: 042
     Dates: start: 20160613

REACTIONS (1)
  - Pyrexia [Recovered/Resolved]

NARRATIVE: CASE EVENT DATE: 20160803
